FAERS Safety Report 5501330-2 (Version None)
Quarter: 2007Q4

REPORT INFORMATION
  Report Type: 
  Country: None (occurrence: None)
  Receive Date: 20071026
  Receipt Date: 20071017
  Transmission Date: 20080405
  Serious: Yes (Death, Hospitalization, Other)
  Sender: FDA-Public Use
  Company Number: 2007-03484

PATIENT
  Age: 54 Year
  Sex: Female
  Weight: 60.3 kg

DRUGS (14)
  1. VELCADE [Suspect]
     Indication: MULTIPLE MYELOMA
     Dosage: 1.10 MG/M2
     Dates: start: 20060327, end: 20060330
  2. FERROUS SULFATE TAB [Concomitant]
  3. PRILOSEC [Concomitant]
  4. ACYCLOVIR [Concomitant]
  5. BACTRIM DS [Concomitant]
  6. COUMADIN [Concomitant]
  7. COMPAZINE [Concomitant]
  8. SENNA (SENNA) [Concomitant]
  9. COLACE (DOCUSATE SODIUM) [Concomitant]
  10. AREDIA [Concomitant]
  11. PROCRIT [Concomitant]
  12. LASIX [Concomitant]
  13. ATIVAN [Concomitant]
  14. MS CONTIN [Concomitant]

REACTIONS (15)
  - ABDOMINAL DISCOMFORT [None]
  - ASTHENIA [None]
  - DEHYDRATION [None]
  - HAEMODIALYSIS [None]
  - HERPES ZOSTER [None]
  - HYPOKALAEMIA [None]
  - LEUKAEMIA PLASMACYTIC [None]
  - MALIGNANT NEOPLASM PROGRESSION [None]
  - MALNUTRITION [None]
  - MULTIPLE MYELOMA [None]
  - NAUSEA [None]
  - PNEUMONIA [None]
  - RENAL FAILURE ACUTE [None]
  - THROMBOCYTOPENIA [None]
  - VOMITING [None]
